FAERS Safety Report 7281931-4 (Version None)
Quarter: 2011Q1

REPORT INFORMATION
  Report Type: 
  Country: None (occurrence: None)
  Receive Date: 20110208
  Receipt Date: 20110126
  Transmission Date: 20110831
  Serious: Yes (Hospitalization)
  Sender: FDA-Public Use
  Company Number: SG-MYLANLABS-2011S1001905

PATIENT
  Age: 20 Year
  Sex: Female

DRUGS (10)
  1. BUSULFAN [Suspect]
     Indication: CENTRAL NERVOUS SYSTEM LYMPHOMA
     Route: 065
  2. THIOTEPA [Suspect]
     Indication: CENTRAL NERVOUS SYSTEM LYMPHOMA
     Route: 065
  3. PROCARBAZINE [Concomitant]
     Indication: CENTRAL NERVOUS SYSTEM LYMPHOMA
     Route: 065
  4. RITUXIMAB [Concomitant]
     Indication: CENTRAL NERVOUS SYSTEM LYMPHOMA
     Route: 065
  5. VINCRISTINE [Concomitant]
     Indication: CENTRAL NERVOUS SYSTEM LYMPHOMA
     Route: 065
  6. MYCOPHENOLATE MOFETIL [Suspect]
     Indication: LUPUS NEPHRITIS
     Route: 065
  7. ETOPOSIDE [Suspect]
     Indication: CENTRAL NERVOUS SYSTEM LYMPHOMA
     Route: 065
  8. CYTARABINE [Suspect]
     Indication: CENTRAL NERVOUS SYSTEM LYMPHOMA
     Route: 065
  9. CYCLOPHOSPHAMIDE [Suspect]
     Indication: CENTRAL NERVOUS SYSTEM LYMPHOMA
     Route: 065
  10. METHOTREXATE [Suspect]

REACTIONS (9)
  - CENTRAL NERVOUS SYSTEM LYMPHOMA [None]
  - FUNGAEMIA [None]
  - HAEMATURIA [None]
  - SEPSIS [None]
  - FEBRILE NEUTROPENIA [None]
  - POSTERIOR REVERSIBLE ENCEPHALOPATHY SYNDROME [None]
  - STATUS EPILEPTICUS [None]
  - HYPERTENSION [None]
  - STEVENS-JOHNSON SYNDROME [None]
